FAERS Safety Report 8842293 (Version 2)
Quarter: 2012Q4

REPORT INFORMATION
  Report Type: 
  Country: ES (occurrence: ES)
  Receive Date: 20121016
  Receipt Date: 20121101
  Transmission Date: 20130627
  Serious: No
  Sender: FDA-Public Use
  Company Number: ES-009507513-1210ESP005723

PATIENT
  Age: 64 Year
  Sex: Male
  Weight: 68 kg

DRUGS (5)
  1. EZETROL [Suspect]
     Indication: COMBINED HYPERLIPIDAEMIA
     Dosage: 10 mg, qd
     Route: 048
     Dates: start: 201207, end: 201210
  2. TREDAPTIVE [Suspect]
     Indication: COMBINED HYPERLIPIDAEMIA
     Dosage: 2000MG/40 MG, qd
     Route: 048
     Dates: start: 201207, end: 2012
  3. TREDAPTIVE [Suspect]
     Dosage: UNK
     Route: 048
     Dates: start: 201210
  4. ADIRO [Concomitant]
  5. [COMPOSITION UNSPECIFIED] [Concomitant]
     Indication: HYPERTENSION

REACTIONS (3)
  - Blood creatine phosphokinase increased [Recovering/Resolving]
  - Transaminases increased [Recovering/Resolving]
  - Blood triglycerides increased [Unknown]
